FAERS Safety Report 5067786-7 (Version None)
Quarter: 2006Q3

REPORT INFORMATION
  Report Type: 
  Country: None (occurrence: None)
  Receive Date: 20060802
  Receipt Date: 20000529
  Transmission Date: 20061208
  Serious: Yes (Hospitalization)
  Sender: FDA-Public Use
  Company Number: JP-GLAXOSMITHKLINE-B0082461A

PATIENT
  Age: 43 Year
  Sex: Female
  Weight: 68 kg

DRUGS (10)
  1. EPIVIR [Suspect]
     Indication: HIV INFECTION
     Dosage: 150MG TWICE PER DAY
     Route: 048
     Dates: start: 19970901
  2. ZIDOVUDINE [Suspect]
     Indication: HIV INFECTION
     Route: 048
     Dates: start: 19970901, end: 20000622
  3. COMBIVIR [Suspect]
     Indication: HIV INFECTION
     Dosage: 2U PER DAY
     Dates: start: 20000623, end: 20021205
  4. EPZICOM [Suspect]
     Indication: HIV INFECTION
     Dosage: 1U PER DAY
     Route: 048
     Dates: start: 20050721
  5. VIRACEPT [Suspect]
     Indication: HIV INFECTION
     Route: 048
     Dates: start: 19970901
  6. BACTRIM [Suspect]
     Route: 048
     Dates: start: 19970901
  7. BENAMBAX [Suspect]
     Dates: start: 19970915
  8. ZERIT [Suspect]
     Indication: HIV INFECTION
     Dosage: 80MG PER DAY
     Dates: start: 19971110
  9. STOCRIN [Suspect]
     Indication: HIV INFECTION
     Route: 048
     Dates: start: 20000218
  10. KLARICID [Concomitant]
     Route: 048
     Dates: start: 19970901, end: 19990421

REACTIONS (6)
  - COUGH [None]
  - DIABETES MELLITUS [None]
  - DRUG ERUPTION [None]
  - HYPERGLYCAEMIA [None]
  - PNEUMOCYSTIS JIROVECI PNEUMONIA [None]
  - PYREXIA [None]
